FAERS Safety Report 9136989 (Version 1)
Quarter: 2013Q1

REPORT INFORMATION
  Report Type: Spontaneous
  Country: US (occurrence: US)
  Receive Date: 20130304
  Receipt Date: 20130304
  Transmission Date: 20140127
  Serious: No
  Sender: FDA-Public Use
  Company Number: US-ABBOTT-12P-163-1023911-00

PATIENT
  Age: 65 None
  Sex: Male
  Weight: 58.11 kg

DRUGS (12)
  1. ANDROGEL [Suspect]
     Indication: BLOOD TESTOSTERONE DECREASED
     Dosage: LAST 3 BOXES UNAVAILABLE, DISCARDED SO LOT AND EXPIRATION WERE UNAVAILABLE.
     Route: 061
     Dates: start: 2010, end: 20121218
  2. ANDROGEL [Suspect]
     Indication: OSTEOPOROSIS
     Dosage: 2 PACKETS
     Route: 061
     Dates: start: 20121218
  3. PROTONIX [Concomitant]
     Indication: GASTROOESOPHAGEAL REFLUX DISEASE
     Route: 048
  4. RANITIDINE [Concomitant]
     Indication: GASTROOESOPHAGEAL REFLUX DISEASE
     Route: 048
  5. CALCIUM PLUS VITAMIN D [Concomitant]
     Indication: PRODUCT USED FOR UNKNOWN INDICATION
     Route: 048
  6. LUMIGAN [Concomitant]
     Indication: GLAUCOMA
     Dosage: EYE DROPS
     Route: 047
  7. COSOPT [Concomitant]
     Indication: GLAUCOMA
     Route: 047
  8. UNKNOWN PRESCRIPTION ROSACEA CREAMS [Concomitant]
     Indication: ROSACEA
     Route: 061
  9. NOVOLOG [Concomitant]
     Indication: DIABETES MELLITUS
  10. LANTUS [Concomitant]
     Indication: DIABETES MELLITUS
     Dosage: AT NIGHT
  11. PRAVASTATIN [Concomitant]
     Indication: BLOOD CHOLESTEROL
  12. MULTIPLE VITAMINS [Concomitant]
     Indication: VITAMIN SUPPLEMENTATION

REACTIONS (3)
  - Osteoporosis [Not Recovered/Not Resolved]
  - Off label use [Not Recovered/Not Resolved]
  - Blood testosterone decreased [Not Recovered/Not Resolved]
